FAERS Safety Report 11097544 (Version 1)
Quarter: 2015Q2

REPORT INFORMATION
  Report Type: Spontaneous
  Country: US (occurrence: US)
  Receive Date: 20150507
  Receipt Date: 20150507
  Transmission Date: 20150821
  Serious: No
  Sender: FDA-Public Use
  Company Number: US-GLAXOSMITHKLINE-US2015061257

PATIENT
  Sex: Male

DRUGS (3)
  1. NICORETTE [Suspect]
     Active Substance: NICOTINE
     Route: 002
  2. NICODERM CQ [Suspect]
     Active Substance: NICOTINE
     Route: 062
  3. NICORETTE [Suspect]
     Active Substance: NICOTINE
     Route: 002

REACTIONS (2)
  - Choking sensation [Unknown]
  - Rash [Unknown]
